FAERS Safety Report 24017069 (Version 2)
Quarter: 2024Q3

REPORT INFORMATION
  Report Type: Spontaneous
  Country: US (occurrence: US)
  Receive Date: 20240626
  Receipt Date: 20240708
  Transmission Date: 20241017
  Serious: Yes (Other)
  Sender: ENDO
  Company Number: US-ENDO USA, INC.-2024-002707

PATIENT
  Age: 69 Year
  Sex: Male

DRUGS (6)
  1. ADRENALIN [Suspect]
     Active Substance: EPINEPHRINE
     Indication: Cardiogenic shock
     Dosage: TITRATED UP TO 8 MCG/MIN, INFUSION
     Route: 041
  2. ADRENALIN [Suspect]
     Active Substance: EPINEPHRINE
     Dosage: UNK UNKNOWN, INFUSION
     Route: 041
  3. ATENOLOL [Concomitant]
     Active Substance: ATENOLOL
     Indication: Product used for unknown indication
     Dosage: UNK UNKNOWN, UNKNOWN
     Route: 065
  4. VANCOMYCIN [Concomitant]
     Active Substance: VANCOMYCIN
     Indication: Sepsis
     Dosage: UNK UNKNOWN, UNKNOWN
     Route: 065
  5. CEFEPIME [Concomitant]
     Active Substance: CEFEPIME HYDROCHLORIDE
     Indication: Sepsis
     Dosage: UNK UNKNOWN, UNKNOWN
     Route: 065
  6. METRONIDAZOLE [Concomitant]
     Active Substance: METRONIDAZOLE
     Indication: Sepsis
     Dosage: 200 ML/HR, UNKNOWN
     Route: 040

REACTIONS (1)
  - Lactic acidosis [Recovered/Resolved]
